FAERS Safety Report 5520172-5 (Version None)
Quarter: 2007Q4

REPORT INFORMATION
  Report Type: 
  Country: None (occurrence: None)
  Receive Date: 20071116
  Receipt Date: 20071114
  Transmission Date: 20080405
  Serious: Yes (Life-Threatening, Hospitalization, Disabling)
  Sender: FDA-Public Use
  Company Number: US-BOEHRINGER INGELHEIM PHARMACEUTICALS, INC.-2007-BP-04590BP

PATIENT
  Age: 55 Year
  Sex: Female
  Weight: 56 kg

DRUGS (6)
  1. MOBIC [Suspect]
     Indication: OSTEOARTHRITIS
     Route: 048
     Dates: start: 20060406, end: 20070108
  2. KLONOPIN [Concomitant]
  3. ADDERALL 10 [Concomitant]
  4. ZELNORM [Concomitant]
     Indication: CONSTIPATION
  5. SYNTHROID [Concomitant]
     Indication: THYROID DISORDER
  6. SEROQUEL [Concomitant]

REACTIONS (29)
  - ARTHRITIS [None]
  - ASTHENIA [None]
  - BLISTER [None]
  - BLOOD THYROID STIMULATING HORMONE INCREASED [None]
  - BLOOD URINE PRESENT [None]
  - BURNING SENSATION [None]
  - CHILLS [None]
  - COLD SWEAT [None]
  - DIZZINESS [None]
  - DIZZINESS EXERTIONAL [None]
  - FATIGUE [None]
  - FUNGAL INFECTION [None]
  - HEPATIC NECROSIS [None]
  - HEPATITIS [None]
  - HEPATITIS C [None]
  - HEPATITIS C ANTIBODY POSITIVE [None]
  - HERPES SIMPLEX DNA TEST POSITIVE [None]
  - INFLUENZA LIKE ILLNESS [None]
  - LIVER FUNCTION TEST ABNORMAL [None]
  - MEMORY IMPAIRMENT [None]
  - OEDEMA PERIPHERAL [None]
  - RASH [None]
  - RENAL DISORDER [None]
  - SKIN LESION [None]
  - TENOSYNOVITIS [None]
  - THYROID DISORDER [None]
  - URINARY TRACT INFECTION [None]
  - WEIGHT DECREASED [None]
  - WEIGHT INCREASED [None]
